FAERS Safety Report 9346048 (Version 3)
Quarter: 2014Q3

REPORT INFORMATION
  Report Type: Report from Study
  Country: CA (occurrence: CA)
  Receive Date: 20130613
  Receipt Date: 20140701
  Transmission Date: 20150326
  Serious: Yes (Life-Threatening, Other)
  Sender: FDA-Public Use
  Company Number: CA-ROCHE-1099505

PATIENT
  Age: 72 Year
  Sex: Female
  Weight: 102.5 kg

DRUGS (19)
  1. OMEPRAZOLE. [Concomitant]
     Active Substance: OMEPRAZOLE
  2. TYLENOL [Concomitant]
     Active Substance: ACETAMINOPHEN
     Indication: PREMEDICATION
     Route: 048
     Dates: start: 20120725, end: 20130604
  3. RITUXAN [Suspect]
     Active Substance: RITUXIMAB
     Indication: RHEUMATOID ARTHRITIS
     Dosage: LAST RITUXAN DOSE WAS ON 12/JUN/2014
     Route: 042
     Dates: start: 20120725
  4. RITUXAN [Suspect]
     Active Substance: RITUXIMAB
     Route: 042
     Dates: start: 20130604, end: 20130604
  5. HYDROMORPHONE [Concomitant]
     Active Substance: HYDROMORPHONE
     Dosage: AS REQUIRED
     Route: 065
  6. WARFARIN [Concomitant]
     Active Substance: WARFARIN
  7. ADALAT [Concomitant]
     Active Substance: NIFEDIPINE
  8. SLOW-K [Concomitant]
     Active Substance: POTASSIUM CHLORIDE
  9. SOLU-MEDROL [Concomitant]
     Active Substance: METHYLPREDNISOLONE SODIUM SUCCINATE
     Route: 042
     Dates: start: 20130604, end: 20130604
  10. SOLU-MEDROL [Concomitant]
     Active Substance: METHYLPREDNISOLONE SODIUM SUCCINATE
     Indication: PREMEDICATION
     Route: 042
     Dates: start: 20120725, end: 20130604
  11. SIMVASTATIN. [Concomitant]
     Active Substance: SIMVASTATIN
  12. MAVIK [Concomitant]
     Active Substance: TRANDOLAPRIL
  13. BENADRYL [Concomitant]
     Active Substance: DIPHENHYDRAMINE HYDROCHLORIDE
     Indication: PREMEDICATION
     Route: 048
     Dates: start: 20120725
  14. BUPROPION SR [Concomitant]
     Active Substance: BUPROPION
  15. MACROBID [Concomitant]
     Active Substance: NITROFURANTOIN\NITROFURANTOIN MONOHYDRATE
     Route: 065
  16. LORAZEPAM. [Concomitant]
     Active Substance: LORAZEPAM
  17. ATENOLOL. [Concomitant]
     Active Substance: ATENOLOL
  18. HYDROCHLOROTHIAZIDE. [Concomitant]
     Active Substance: HYDROCHLOROTHIAZIDE
     Dosage: AS REQUIRED
     Route: 065
  19. ACETAMINOPHEN. [Concomitant]
     Active Substance: ACETAMINOPHEN
     Dosage: AS REQUIRED
     Route: 048
     Dates: start: 20120725

REACTIONS (14)
  - Dyspnoea [Recovered/Resolved]
  - Throat tightness [Recovering/Resolving]
  - Tinnitus [Recovered/Resolved]
  - Atrial fibrillation [Unknown]
  - Palpitations [Recovered/Resolved]
  - Tremor [Recovered/Resolved]
  - Paraesthesia [Recovering/Resolving]
  - Malaise [Not Recovered/Not Resolved]
  - Throat irritation [Recovering/Resolving]
  - Dysgeusia [Recovered/Resolved]
  - Flushing [Recovered/Resolved]
  - Hypoaesthesia [Recovering/Resolving]
  - Sinus congestion [Recovered/Resolved]
  - Headache [Recovered/Resolved]

NARRATIVE: CASE EVENT DATE: 20120807
